FAERS Safety Report 22067555 (Version 2)
Quarter: 2023Q1

REPORT INFORMATION
  Report Type: Spontaneous
  Country: US (occurrence: US)
  Receive Date: 20230307
  Receipt Date: 20230307
  Transmission Date: 20230418
  Serious: Yes (Other)
  Sender: FDA-Public Use
  Company Number: US-AMGEN-USASP2023036445

PATIENT
  Age: 67 Year
  Sex: Male

DRUGS (1)
  1. TALIMOGENE LAHERPAREPVEC [Suspect]
     Active Substance: TALIMOGENE LAHERPAREPVEC
     Indication: Metastatic malignant melanoma
     Dosage: 0. 5 ML OF 10^6 PFU/ML T-VEC
     Route: 065

REACTIONS (1)
  - Herpes simplex [Recovered/Resolved]
